FAERS Safety Report 25819777 (Version 2)
Quarter: 2025Q3

REPORT INFORMATION
  Report Type: Spontaneous
  Country: US (occurrence: US)
  Receive Date: 20250918
  Receipt Date: 20250929
  Transmission Date: 20251021
  Serious: No
  Sender: NEUROCRINE BIOSCIENCES
  Company Number: US-NBI-NBI-US-3454-2025

PATIENT
  Age: 23 Year
  Sex: Male

DRUGS (2)
  1. CRENESSITY [Suspect]
     Active Substance: CRINECERFONT
     Indication: Adrenogenital syndrome
     Route: 048
  2. CRENESSITY [Suspect]
     Active Substance: CRINECERFONT
     Route: 048
     Dates: start: 20250329

REACTIONS (3)
  - Diarrhoea [Unknown]
  - Wrong dose [Unknown]
  - Overdose [Unknown]
